FAERS Safety Report 8814156 (Version 2)
Quarter: 2012Q4

REPORT INFORMATION
  Report Type: 
  Country: US (occurrence: US)
  Receive Date: 20120928
  Receipt Date: 20121211
  Transmission Date: 20130627
  Serious: No
  Sender: FDA-Public Use
  Company Number: US-009507513-1208USA010542

PATIENT
  Sex: Male
  Weight: 55.33 kg

DRUGS (1)
  1. PROVENTIL [Suspect]
     Dosage: UNK
     Route: 055

REACTIONS (3)
  - Drug dose omission [Unknown]
  - Product quality issue [Unknown]
  - No adverse event [Unknown]
